FAERS Safety Report 6875046-4 (Version None)
Quarter: 2010Q3

REPORT INFORMATION
  Report Type: 
  Country: None (occurrence: None)
  Receive Date: 20100727
  Receipt Date: 20100722
  Transmission Date: 20110219
  Serious: Yes (Death, Hospitalization, Other)
  Sender: FDA-Public Use
  Company Number: IN-AMGEN-UK288974

PATIENT
  Sex: Male
  Weight: 38 kg

DRUGS (10)
  1. DENOSUMAB [Suspect]
     Indication: METASTASES TO BONE
     Route: 058
     Dates: start: 20070723, end: 20080428
  2. ZOMETA [Suspect]
     Indication: METASTASES TO BONE
     Route: 042
     Dates: start: 20070723, end: 20071210
  3. DEXAMETHASONE [Concomitant]
     Dates: start: 20080428, end: 20080502
  4. RANITIDINE [Concomitant]
     Dates: start: 20080428, end: 20080502
  5. ARICEPT [Concomitant]
     Dates: start: 20080428, end: 20080609
  6. LACTOBACILLUS ACIDOPHILUS [Concomitant]
     Dates: start: 20080428, end: 20080609
  7. METOCLOPRAMIDE [Concomitant]
     Route: 048
     Dates: start: 20080610, end: 20080621
  8. ENSURE [Concomitant]
     Dates: start: 20080610, end: 20080621
  9. AMOXICILLIN [Concomitant]
     Dates: start: 20080610, end: 20080621
  10. CLAVULANATE POTASSIUM [Concomitant]
     Dates: start: 20080610, end: 20080621

REACTIONS (9)
  - ANAEMIA [None]
  - ASTHENIA [None]
  - BLOOD CREATININE INCREASED [None]
  - CREATININE RENAL CLEARANCE DECREASED [None]
  - DECREASED APPETITE [None]
  - LUNG INFECTION [None]
  - PLEURAL EFFUSION [None]
  - RESPIRATORY FAILURE [None]
  - WEIGHT DECREASED [None]
